FAERS Safety Report 9405280 (Version 1)
Quarter: 2013Q3

REPORT INFORMATION
  Report Type: Spontaneous
  Country: US (occurrence: US)
  Receive Date: 20130717
  Receipt Date: 20130717
  Transmission Date: 20140515
  Serious: No
  Sender: FDA-Public Use
  Company Number: US-009507513-1307USA006755

PATIENT
  Age: 24 Year
  Sex: Female

DRUGS (3)
  1. SAPHRIS [Suspect]
     Indication: SCHIZOPHRENIA
     Dosage: 20 MG, QD
     Dates: start: 20100419
  2. SAPHRIS [Suspect]
     Dosage: 20 MG, QD
     Dates: start: 20120207
  3. SAPHRIS [Suspect]
     Dosage: UNK, PRN
     Dates: start: 20100613

REACTIONS (1)
  - Dysgeusia [Unknown]
